FAERS Safety Report 7998141-5 (Version None)
Quarter: 2011Q4

REPORT INFORMATION
  Report Type: 
  Country: None (occurrence: None)
  Receive Date: 20111221
  Receipt Date: 20110307
  Transmission Date: 20120403
  Serious: No
  Sender: FDA-Public Use
  Company Number: US-GLAXOSMITHKLINE-A0916961A

PATIENT
  Sex: Male

DRUGS (3)
  1. NORVASC [Suspect]
  2. LOVAZA [Suspect]
     Route: 065
  3. LISINOPRIL [Suspect]

REACTIONS (1)
  - BLOOD TRIGLYCERIDES INCREASED [None]
